FAERS Safety Report 4664068-X (Version None)
Quarter: 2005Q2

REPORT INFORMATION
  Report Type: 
  Country: None (occurrence: None)
  Receive Date: 20050516
  Receipt Date: 20050516
  Transmission Date: 20051028
  Serious: Yes (Congenital Anomaly)
  Sender: FDA-Public Use
  Company Number: None

PATIENT
  Age: 48 Year
  Sex: Male
  Weight: 88.4514 kg

DRUGS (2)
  1. FLUOXETINE [Suspect]
     Indication: DEPRESSION
     Dosage: 40 MG/DAY/MOUTH
     Route: 048
     Dates: start: 20040101
  2. PROZAC [Concomitant]

REACTIONS (2)
  - REGURGITATION OF FOOD [None]
  - STOMACH DISCOMFORT [None]
